FAERS Safety Report 11806738 (Version 4)
Quarter: 2019Q4

REPORT INFORMATION
  Report Type: Spontaneous
  Country: US (occurrence: US)
  Receive Date: 20151207
  Receipt Date: 20191203
  Transmission Date: 20200122
  Serious: Yes (Death, Other)
  Sender: FDA-Public Use
  Company Number: US-PFIZER INC-2015421587

PATIENT
  Age: 76 Year
  Sex: Male

DRUGS (8)
  1. VIAGRA [Suspect]
     Active Substance: SILDENAFIL CITRATE
     Dosage: 100 MG, UNK (FEW TIMES A MONTH)
     Route: 048
     Dates: start: 20091210, end: 20110715
  2. VIAGRA [Suspect]
     Active Substance: SILDENAFIL CITRATE
     Dosage: UNK
     Route: 048
     Dates: start: 20100201, end: 20140715
  3. VIAGRA [Suspect]
     Active Substance: SILDENAFIL CITRATE
     Dosage: 100 MG, UNK (FEW TIMES A MONTH)
     Route: 048
     Dates: start: 20120310, end: 201404
  4. VIAGRA [Suspect]
     Active Substance: SILDENAFIL CITRATE
     Indication: ERECTILE DYSFUNCTION
     Dosage: 100 MG, UNK (FEW TIMES A MONTH)
     Route: 048
     Dates: start: 2000, end: 2005
  5. VIAGRA [Suspect]
     Active Substance: SILDENAFIL CITRATE
     Dosage: 100 MG, 1X/DAY (ONE HOUR BEFORE SEXUAL ACTIVITY)
     Route: 048
     Dates: start: 20091210
  6. VIAGRA [Suspect]
     Active Substance: SILDENAFIL CITRATE
     Dosage: UNK, REGULARLY
     Route: 048
     Dates: start: 200912, end: 201407
  7. CIALIS [Suspect]
     Active Substance: TADALAFIL
     Indication: ERECTILE DYSFUNCTION
     Dosage: 10 MG, AS NEEDED (FEW TIMES A MONTH)
     Route: 048
     Dates: start: 20120116, end: 20140114
  8. VIAGRA [Suspect]
     Active Substance: SILDENAFIL CITRATE
     Dosage: 100 MG, UNK (FEW TIMES A MONTH)
     Route: 048
     Dates: start: 2005, end: 2009

REACTIONS (6)
  - Metastatic malignant melanoma [Fatal]
  - Malignant melanoma [Unknown]
  - Pneumonia [Unknown]
  - Colitis [Unknown]
  - Emotional distress [Unknown]
  - Anxiety [Unknown]

NARRATIVE: CASE EVENT DATE: 20131105
